FAERS Safety Report 7740145-1 (Version None)
Quarter: 2011Q3

REPORT INFORMATION
  Report Type: 
  Country: None (occurrence: None)
  Receive Date: 20110909
  Receipt Date: 20110906
  Transmission Date: 20111222
  Serious: Yes (Hospitalization)
  Sender: FDA-Public Use
  Company Number: DE-ROCHE-788005

PATIENT
  Sex: Male
  Weight: 70 kg

DRUGS (6)
  1. CAPECITABINE [Suspect]
     Indication: RECTAL CANCER
     Dosage: SCHEDULED: 825 MG/M2, TWICW DAILY ON DAY 1-33 WITHOUT WEEKENDS AND OPTIONAL BOOST. LAST DOSE 7-01-11
     Route: 048
     Dates: start: 20101220, end: 20110107
  2. DELIX 5 [Concomitant]
     Indication: HYPERTENSION
     Route: 048
  3. OXALIPLATIN [Suspect]
     Indication: RECTAL CANCER
     Dosage: SCHEDULED: 50 MG/M2 ON DAY 1,15,22,29. LAST DOSE ON:3 JAN 2011
     Route: 042
     Dates: start: 20101220, end: 20110107
  4. EZETIMIBE [Concomitant]
     Dosage: DOSE: 10/20MG
     Route: 048
  5. BISOPROLOL FUMARATE [Concomitant]
     Indication: HYPERTENSION
     Route: 048
  6. FRAXIPARIN [Concomitant]
     Indication: THROMBOSIS PROPHYLAXIS
     Route: 058

REACTIONS (6)
  - FATIGUE [None]
  - THROMBOCYTOPENIA [None]
  - LEUKOPENIA [None]
  - INFLAMMATION [None]
  - DIARRHOEA [None]
  - VOMITING [None]
